FAERS Safety Report 9416354 (Version 1)
Quarter: 2013Q3

REPORT INFORMATION
  Report Type: Spontaneous
  Country: BE (occurrence: BE)
  Receive Date: 20130724
  Receipt Date: 20130724
  Transmission Date: 20140515
  Serious: Yes (Hospitalization, Other)
  Sender: FDA-Public Use
  Company Number: BE-ELI_LILLY_AND_COMPANY-BE201305005260

PATIENT
  Age: 25 Year
  Sex: Female
  Weight: 98.2 kg

DRUGS (1)
  1. ZYPADHERA [Suspect]
     Dosage: 405 MG, 2/M

REACTIONS (16)
  - Micturition urgency [Recovered/Resolved]
  - Hallucination [Recovered/Resolved]
  - Fatigue [Recovered/Resolved]
  - Muscular weakness [Recovered/Resolved]
  - Gait disturbance [Recovered/Resolved]
  - Sedation [Recovered/Resolved]
  - Confusional state [Recovered/Resolved]
  - Delirium [Recovered/Resolved]
  - Disorientation [Recovered/Resolved]
  - Dizziness [Recovered/Resolved]
  - Asthenia [Recovered/Resolved]
  - Restlessness [Unknown]
  - Agitation [Recovered/Resolved]
  - Hypertension [Recovered/Resolved]
  - Dysarthria [Recovered/Resolved]
  - Prescribed overdose [Unknown]
